FAERS Safety Report 23195815 (Version 1)
Quarter: 2023Q4

REPORT INFORMATION
  Report Type: Spontaneous
  Country: US (occurrence: US)
  Receive Date: 20231117
  Receipt Date: 20231117
  Transmission Date: 20240110
  Serious: Yes (Other)
  Sender: FDA-Public Use
  Company Number: US-AMGEN-USASP2023199663

PATIENT
  Age: 67 Year
  Sex: Female

DRUGS (4)
  1. FILGRASTIM [Suspect]
     Active Substance: FILGRASTIM
     Indication: Leukopenia
     Dosage: 6 MILLIGRAM, Q4WK
     Route: 065
  2. FILGRASTIM [Suspect]
     Active Substance: FILGRASTIM
     Indication: Anaemia
  3. DARBEPOETIN ALFA [Suspect]
     Active Substance: DARBEPOETIN ALFA
     Indication: Leukopenia
     Dosage: UNK
     Route: 065
  4. DARBEPOETIN ALFA [Suspect]
     Active Substance: DARBEPOETIN ALFA
     Indication: Anaemia

REACTIONS (5)
  - Myelofibrosis [Unknown]
  - Off label use [Unknown]
  - Janus kinase 2 mutation [Unknown]
  - ASXL1 gene mutation [Unknown]
  - Polycythaemia [Unknown]

NARRATIVE: CASE EVENT DATE: 20190101
